FAERS Safety Report 6937743-1 (Version None)
Quarter: 2010Q3

REPORT INFORMATION
  Report Type: 
  Country: None (occurrence: None)
  Receive Date: 20100820
  Receipt Date: 20100820
  Transmission Date: 20110219
  Serious: Yes (Other)
  Sender: FDA-Public Use
  Company Number: None

PATIENT
  Sex: Female
  Weight: 87.5442 kg

DRUGS (1)
  1. NEOMYCIN/POLYMYXIN/HYDROCORTISON BAUSCH+LOMB [Suspect]
     Indication: BLISTER
     Dosage: 4 DROPS 3 TIMES DAY IN EAR
     Dates: start: 20100818, end: 20100819

REACTIONS (1)
  - DIARRHOEA [None]
